FAERS Safety Report 23958924 (Version 5)
Quarter: 2024Q4

REPORT INFORMATION
  Report Type: Spontaneous
  Country: CA (occurrence: CA)
  Receive Date: 20240611
  Receipt Date: 20241226
  Transmission Date: 20250114
  Serious: Yes (Other)
  Sender: PFIZER
  Company Number: CA-PFIZER INC-202400007604

PATIENT
  Age: 47 Year
  Sex: Female

DRUGS (3)
  1. RUXIENCE [Suspect]
     Active Substance: RITUXIMAB-PVVR
     Indication: Multiple sclerosis
     Dosage: 1000 MG, EVERY 2 WEEKS X 2 DOSES THEN 1000 MG EVERY 6 MONTHS
     Route: 042
     Dates: start: 20240606
  2. RUXIENCE [Suspect]
     Active Substance: RITUXIMAB-PVVR
     Dosage: 1000 MG, 1 WEEK AND 6 DAYS (1000 MG Q 2 WEEKS X 2 DOSES THEN 1000 MG Q 6 MONTHS)
     Route: 042
     Dates: start: 20240619
  3. RUXIENCE [Suspect]
     Active Substance: RITUXIMAB-PVVR
     Dosage: 1000 MG, SUBSEQUENT DAY 1(1000 MG Q 2 WEEKS X 2 DOSES THEN 1000 MG Q 6 MONTHS)
     Route: 042
     Dates: start: 20241218

REACTIONS (9)
  - Throat irritation [Recovered/Resolved]
  - Ear pruritus [Recovered/Resolved]
  - Condition aggravated [Unknown]
  - Paraesthesia oral [Recovered/Resolved]
  - Nasal congestion [Recovered/Resolved]
  - Pruritus [Recovered/Resolved]
  - Throat tightness [Recovered/Resolved]
  - Skin tightness [Recovered/Resolved]
  - Off label use [Unknown]

NARRATIVE: CASE EVENT DATE: 20240601
